FAERS Safety Report 4530558-3 (Version None)
Quarter: 2004Q4

REPORT INFORMATION
  Report Type: 
  Country: None (occurrence: None)
  Receive Date: 20041217
  Receipt Date: 20041217
  Transmission Date: 20050328
  Serious: Yes (Life-Threatening, Hospitalization, Disabling)
  Sender: FDA-Public Use
  Company Number: None

PATIENT
  Age: 21 Year
  Sex: Male
  Weight: 136.0791 kg

DRUGS (5)
  1. PAXIL [Suspect]
     Indication: BIPOLAR I DISORDER
     Dosage: 60 MG DAY ORAL
     Route: 048
     Dates: start: 20000115, end: 20010615
  2. PAXIL [Suspect]
     Indication: DEPRESSION
     Dosage: 60 MG DAY ORAL
     Route: 048
     Dates: start: 20000115, end: 20010615
  3. EFFEXOR [Concomitant]
  4. KLONOPIN [Concomitant]
  5. RISPERDAL [Concomitant]

REACTIONS (2)
  - DEPRESSION [None]
  - SUICIDAL IDEATION [None]
